FAERS Safety Report 7378510-7 (Version None)
Quarter: 2011Q1

REPORT INFORMATION
  Report Type: 
  Country: None (occurrence: None)
  Receive Date: 20110328
  Receipt Date: 20110321
  Transmission Date: 20110831
  Serious: Yes (Life-Threatening, Other)
  Sender: FDA-Public Use
  Company Number: FR-ABBOTT-11P-056-0710617-00

PATIENT
  Sex: Male

DRUGS (6)
  1. SELOKEN [Concomitant]
     Indication: PRODUCT USED FOR UNKNOWN INDICATION
  2. HUMIRA [Suspect]
     Indication: ANKYLOSING SPONDYLITIS
     Route: 058
     Dates: start: 20100301, end: 20110202
  3. AMACOR [Concomitant]
     Indication: PRODUCT USED FOR UNKNOWN INDICATION
  4. ASPEGIC 325 [Concomitant]
     Indication: PRODUCT USED FOR UNKNOWN INDICATION
  5. FRACTAL [Concomitant]
     Indication: PRODUCT USED FOR UNKNOWN INDICATION
  6. METFORMINE [Concomitant]
     Indication: PRODUCT USED FOR UNKNOWN INDICATION

REACTIONS (18)
  - RESPIRATORY FAILURE [None]
  - ORTHOPNOEA [None]
  - CARDIAC FAILURE CONGESTIVE [None]
  - BUNDLE BRANCH BLOCK LEFT [None]
  - AGITATION [None]
  - HYPERHIDROSIS [None]
  - PERICARDIAL EFFUSION [None]
  - ANXIETY [None]
  - CARDIOGENIC SHOCK [None]
  - RENAL FAILURE [None]
  - DYSPNOEA EXERTIONAL [None]
  - INFECTION [None]
  - HEPATIC FAILURE [None]
  - ASPHYXIA [None]
  - ATRIAL FIBRILLATION [None]
  - HYPOTENSION [None]
  - PLEURAL EFFUSION [None]
  - EAR INFECTION [None]
